APPROVED DRUG PRODUCT: AMPHETAMINE SULFATE
Active Ingredient: AMPHETAMINE SULFATE
Strength: 10MG
Dosage Form/Route: TABLET;ORAL
Application: A213763 | Product #002
Applicant: NOVAST LABORATORIES LTD
Approved: Aug 24, 2020 | RLD: No | RS: No | Type: DISCN